FAERS Safety Report 10852262 (Version 1)
Quarter: 2015Q1

REPORT INFORMATION
  Report Type: Spontaneous
  Country: US (occurrence: US)
  Receive Date: 20150222
  Receipt Date: 20150222
  Transmission Date: 20150721
  Serious: No
  Sender: FDA-Public Use
  Company Number: US-ALLERGAN-1425072US

PATIENT
  Age: 57 Year
  Sex: Male

DRUGS (1)
  1. BOTOX COSMETIC [Suspect]
     Active Substance: ONABOTULINUMTOXINA
     Indication: SKIN WRINKLING
     Dosage: 30 UNITS, SINGLE
     Route: 030
     Dates: start: 20141125, end: 20141125

REACTIONS (6)
  - Eyelid oedema [Recovering/Resolving]
  - Swelling [Recovering/Resolving]
  - Rash pruritic [Recovering/Resolving]
  - Skin irritation [Recovering/Resolving]
  - Eyelid sensory disorder [Recovering/Resolving]
  - Dry skin [Not Recovered/Not Resolved]

NARRATIVE: CASE EVENT DATE: 20141126
